FAERS Safety Report 7077727-9 (Version None)
Quarter: 2010Q4

REPORT INFORMATION
  Report Type: 
  Country: None (occurrence: None)
  Receive Date: 20101021
  Receipt Date: 20101007
  Transmission Date: 20110411
  Serious: Yes (Other)
  Sender: FDA-Public Use
  Company Number: 012186

PATIENT
  Sex: Female
  Weight: 65 kg

DRUGS (2)
  1. NEUPRO [Suspect]
     Indication: RESTLESS LEGS SYNDROME
     Dosage: (2 MG QD TRANSDERMAL)
     Route: 062
     Dates: start: 20080616, end: 20100120
  2. TRAZODONE HCL [Concomitant]

REACTIONS (5)
  - ACCIDENT [None]
  - CLAVICLE FRACTURE [None]
  - FALL [None]
  - SLEEP ATTACKS [None]
  - TRAUMATIC FRACTURE [None]
